FAERS Safety Report 17030350 (Version 3)
Quarter: 2020Q1

REPORT INFORMATION
  Report Type: Report from Study
  Country: None (occurrence: IL)
  Receive Date: 20191114
  Receipt Date: 20200118
  Transmission Date: 20200409
  Serious: Yes (Hospitalization)
  Sender: FDA-Public Use
  Company Number: IL-ABBVIE-19K-082-2999554-00

PATIENT
  Sex: Male

DRUGS (1)
  1. DUODOPA [Suspect]
     Active Substance: CARBIDOPA\LEVODOPA
     Indication: PARKINSON^S DISEASE
     Dosage: CURRENT MORNING DOSE- 10 ML, CURRENT FIXED RATE-4.5 ML/ HOUR, CURRENT EXTRA DOSE-2.5 ML
     Route: 050
     Dates: start: 20120305

REACTIONS (7)
  - Induction of anaesthesia [Recovering/Resolving]
  - Mechanical ventilation [Recovering/Resolving]
  - Blood pressure decreased [Recovering/Resolving]
  - Loss of consciousness [Recovering/Resolving]
  - Large intestinal haemorrhage [Recovered/Resolved]
  - Post procedural haemorrhage [Recovered/Resolved]
  - Mobility decreased [Unknown]
